FAERS Safety Report 9266686 (Version 1)
Quarter: 2013Q2

REPORT INFORMATION
  Report Type: Spontaneous
  Country: GB (occurrence: GB)
  Receive Date: 20130502
  Receipt Date: 20130502
  Transmission Date: 20140414
  Serious: Yes (Other)
  Sender: FDA-Public Use
  Company Number: GB-BRISTOL-MYERS SQUIBB COMPANY-18836494

PATIENT
  Sex: Male

DRUGS (13)
  1. SUSTIVA TABS 600 MG [Suspect]
     Route: 048
  2. TEMAZEPAM [Concomitant]
  3. SEPTRIN [Concomitant]
  4. PARACETAMOL [Concomitant]
  5. SERTRALINE [Concomitant]
  6. DIAZEPAM [Concomitant]
  7. QUININE SULFATE [Concomitant]
  8. ABACAVIR [Concomitant]
  9. TENOFOVIR [Concomitant]
  10. ACICLOVIR [Concomitant]
  11. TRANEXAMIC ACID [Concomitant]
  12. CYCLIZINE [Concomitant]
  13. PANTOPRAZOLE [Concomitant]

REACTIONS (2)
  - Intestinal obstruction [Unknown]
  - Intestinal fistula [Unknown]
